FAERS Safety Report 14351862 (Version 1)
Quarter: 2018Q1

REPORT INFORMATION
  Report Type: Report from Study
  Country: US (occurrence: US)
  Receive Date: 20180104
  Receipt Date: 20180104
  Transmission Date: 20180509
  Serious: No
  Sender: FDA-Public Use
  Company Number: US-ALEXION PHARMACEUTICALS INC.-A201714352

PATIENT
  Sex: Male

DRUGS (1)
  1. STRENSIQ [Suspect]
     Active Substance: ASFOTASE ALFA
     Indication: PRODUCT USED FOR UNKNOWN INDICATION
     Dosage: UNK
     Route: 065

REACTIONS (6)
  - Skin depigmentation [Recovered/Resolved]
  - Blood alkaline phosphatase increased [Unknown]
  - Lipohypertrophy [Recovered/Resolved]
  - Crystal urine [Unknown]
  - Pharyngitis streptococcal [Recovered/Resolved]
  - Bacterial test [Unknown]
